FAERS Safety Report 9587557 (Version 2)
Quarter: 2013Q4

REPORT INFORMATION
  Report Type: Spontaneous
  Country: US (occurrence: US)
  Receive Date: 20131003
  Receipt Date: 20131011
  Transmission Date: 20140711
  Serious: No
  Sender: FDA-Public Use
  Company Number: US-TEVA-436214USA

PATIENT
  Age: 24 Year
  Sex: Female
  Weight: 74.91 kg

DRUGS (2)
  1. PLAN B ONE-STEP [Suspect]
     Indication: POST COITAL CONTRACEPTION
     Dosage: .75 MILLIGRAM DAILY;
     Route: 048
     Dates: start: 20130918, end: 20130918
  2. ERYTHROMYCIN [Suspect]
     Indication: CHLAMYDIAL INFECTION
     Dosage: TWO PILL, ONE-TIME DOSE

REACTIONS (1)
  - Menstruation irregular [Recovered/Resolved]
